FAERS Safety Report 22177856 (Version 2)
Quarter: 2023Q2

REPORT INFORMATION
  Report Type: Report from Study
  Country: BE (occurrence: BE)
  Receive Date: 20230405
  Receipt Date: 20230412
  Transmission Date: 20230722
  Serious: Yes (Hospitalization)
  Sender: FDA-Public Use
  Company Number: BE-DSJP-DSU-2023-113055

PATIENT
  Age: 48 Year
  Sex: Female
  Weight: 108 kg

DRUGS (7)
  1. ENHERTU [Interacting]
     Active Substance: FAM-TRASTUZUMAB DERUXTECAN-NXKI
     Indication: HER2 positive breast cancer
     Dosage: 583 MG, ONCE EVERY 3 WK
     Route: 042
     Dates: start: 20230206, end: 20230206
  2. ENHERTU [Interacting]
     Active Substance: FAM-TRASTUZUMAB DERUXTECAN-NXKI
     Dosage: 464 MG, ONCE EVERY 3 WK
     Route: 042
     Dates: start: 20230310, end: 20230310
  3. PANTOPRAZOLE [Concomitant]
     Active Substance: PANTOPRAZOLE
     Indication: Abdominal pain upper
     Dosage: 40 MG, QD
     Route: 048
     Dates: start: 202103
  4. ELIQUIS [Concomitant]
     Active Substance: APIXABAN
     Indication: Deep vein thrombosis
     Dosage: 5 MG, BID
     Route: 048
     Dates: start: 202111
  5. INDERAL [Concomitant]
     Active Substance: PROPRANOLOL HYDROCHLORIDE
     Indication: Migraine
     Dosage: 40 MG, BID
     Route: 048
  6. ZOPICLONE [Concomitant]
     Active Substance: ZOPICLONE
     Indication: Sleep deficit
     Dosage: 7.5 MG, QD
     Route: 048
     Dates: start: 202112
  7. REDOMAX [Concomitant]
     Indication: Depression
     Dosage: 20 MG, QD
     Route: 048

REACTIONS (2)
  - Neutropenic colitis [Recovered/Resolved]
  - Nausea [Recovered/Resolved]

NARRATIVE: CASE EVENT DATE: 20230215
